FAERS Safety Report 17962950 (Version 1)
Quarter: 2020Q2

REPORT INFORMATION
  Report Type: Spontaneous
  Country: US (occurrence: US)
  Receive Date: 20200630
  Receipt Date: 20200630
  Transmission Date: 20200714
  Serious: Yes (Other)
  Sender: FDA-Public Use
  Company Number: US-GW PHARMA-202006USGW02325

PATIENT

DRUGS (2)
  1. EPIDIOLEX [Suspect]
     Active Substance: CANNABIDIOL
     Indication: LENNOX-GASTAUT SYNDROME
     Dosage: 110 MILLIGRAM, QD
     Route: 048
     Dates: start: 20200527, end: 20200620
  2. EPIDIOLEX [Suspect]
     Active Substance: CANNABIDIOL
     Dosage: 130 MILLIGRAM, QD
     Route: 048
     Dates: start: 20200621

REACTIONS (1)
  - Seizure [Unknown]

NARRATIVE: CASE EVENT DATE: 20200620
